FAERS Safety Report 8423912-0 (Version None)
Quarter: 2012Q2

REPORT INFORMATION
  Report Type: 
  Country: None (occurrence: None)
  Receive Date: 20120608
  Receipt Date: 20120313
  Transmission Date: 20120825
  Serious: No
  Sender: FDA-Public Use
  Company Number: US-ASTRAZENECA-2012SE17065

PATIENT
  Sex: Male

DRUGS (1)
  1. ATACAND [Suspect]
     Route: 048

REACTIONS (9)
  - DRY MOUTH [None]
  - DRUG DOSE OMISSION [None]
  - NAUSEA [None]
  - VOMITING [None]
  - COUGH [None]
  - EXPIRED DRUG ADMINISTERED [None]
  - RETCHING [None]
  - NASAL CONGESTION [None]
  - MALAISE [None]
